FAERS Safety Report 11537976 (Version 1)
Quarter: 2015Q3

REPORT INFORMATION
  Report Type: Spontaneous
  Country: US (occurrence: US)
  Receive Date: 20150922
  Receipt Date: 20150922
  Transmission Date: 20151125
  Serious: Yes (Other)
  Sender: FDA-Public Use
  Company Number: US-ASTRAZENECA-2015SE90699

PATIENT
  Age: 70 Year
  Sex: Female
  Weight: 58.5 kg

DRUGS (10)
  1. FULVESTRANT [Suspect]
     Active Substance: FULVESTRANT
     Route: 058
     Dates: start: 20150311
  2. FULVESTRANT [Suspect]
     Active Substance: FULVESTRANT
     Route: 058
     Dates: start: 20150506
  3. XGEVA [Suspect]
     Active Substance: DENOSUMAB
     Route: 065
     Dates: start: 20150211
  4. XGEVA [Suspect]
     Active Substance: DENOSUMAB
     Route: 065
     Dates: start: 20150225, end: 20150408
  5. XGEVA [Suspect]
     Active Substance: DENOSUMAB
     Route: 065
     Dates: start: 201505
  6. XGEVA [Suspect]
     Active Substance: DENOSUMAB
     Route: 065
     Dates: start: 20150204
  7. DOXORUBICIN [Suspect]
     Active Substance: DOXORUBICIN
     Route: 065
  8. FULVESTRANT [Suspect]
     Active Substance: FULVESTRANT
     Dosage: ONCE IN EVERY 4 WEEKS
     Route: 058
     Dates: start: 20150211
  9. FULVESTRANT [Suspect]
     Active Substance: FULVESTRANT
     Dosage: ONCE IN EVERY 4 WEEKS
     Route: 058
     Dates: start: 20150225
  10. FULVESTRANT [Suspect]
     Active Substance: FULVESTRANT
     Route: 058
     Dates: start: 20150403

REACTIONS (6)
  - Malignant neoplasm progression [Unknown]
  - Tooth infection [Unknown]
  - Osteonecrosis [Unknown]
  - Osteonecrosis of jaw [Unknown]
  - Post procedural complication [Unknown]
  - Body height decreased [Unknown]
